FAERS Safety Report 4894781-0 (Version None)
Quarter: 2006Q1

REPORT INFORMATION
  Report Type: 
  Country: None (occurrence: None)
  Receive Date: 20060130
  Receipt Date: 20051220
  Transmission Date: 20060701
  Serious: Yes (Life-Threatening, Hospitalization, Other)
  Sender: FDA-Public Use
  Company Number: PHNR2005AU01728

PATIENT
  Age: 63 Year
  Sex: Female

DRUGS (9)
  1. CLOZARIL [Suspect]
     Indication: SCHIZOPHRENIA
     Dosage: 0 - 450 MG/DAY
     Dates: start: 20010815, end: 20051217
  2. CLOZARIL [Suspect]
     Dates: start: 20051221, end: 20060117
  3. AMITRIPTYLINE HCL [Concomitant]
  4. AUGMENTIN /UNK/ [Concomitant]
  5. DILTIAZEM HCL [Concomitant]
  6. IRBESARTAN [Concomitant]
  7. HEPARIN [Suspect]
  8. MAXOLON [Concomitant]
  9. MORPHINE [Concomitant]

REACTIONS (20)
  - ABDOMINAL DISTENSION [None]
  - ANOREXIA [None]
  - BILE DUCT CANCER [None]
  - BLOOD ALKALINE PHOSPHATASE INCREASED [None]
  - DIARRHOEA [None]
  - EOSINOPHIL COUNT INCREASED [None]
  - FAECES DISCOLOURED [None]
  - INTESTINAL OBSTRUCTION [None]
  - JAUNDICE [None]
  - LEUKOCYTOSIS [None]
  - LEUKOPENIA [None]
  - NEOPLASM MALIGNANT [None]
  - NEUTROPENIA [None]
  - NEUTROPHIL TOXIC GRANULATION PRESENT [None]
  - NEUTROPHILIA [None]
  - ORAL INTAKE REDUCED [None]
  - SEPSIS [None]
  - SHIFT TO THE LEFT [None]
  - TERMINAL STATE [None]
  - TROPONIN INCREASED [None]
